FAERS Safety Report 7880780-3 (Version None)
Quarter: 2011Q4

REPORT INFORMATION
  Report Type: 
  Country: None (occurrence: None)
  Receive Date: 20111101
  Receipt Date: 20111028
  Transmission Date: 20120403
  Serious: Yes (Death)
  Sender: FDA-Public Use
  Company Number: PHEH2011US08126

PATIENT

DRUGS (1)
  1. AFINITOR [Suspect]
     Indication: CARCINOID TUMOUR
     Dosage: 5 MG

REACTIONS (1)
  - DEATH [None]
